FAERS Safety Report 11994563 (Version 1)
Quarter: 2016Q1

REPORT INFORMATION
  Report Type: Spontaneous
  Country: US (occurrence: US)
  Receive Date: 20160203
  Receipt Date: 20160203
  Transmission Date: 20160526
  Serious: No
  Sender: FDA-Public Use
  Company Number: US-UCBSA-2015035139

PATIENT
  Sex: Female

DRUGS (1)
  1. KEPPRA [Suspect]
     Active Substance: LEVETIRACETAM
     Indication: SEIZURE
     Dosage: UNKNOWN DOSE

REACTIONS (9)
  - Tachyphrenia [Unknown]
  - Memory impairment [Unknown]
  - Migraine [Unknown]
  - Feeling abnormal [Unknown]
  - Fatigue [Unknown]
  - Fibromyalgia [Unknown]
  - Disturbance in attention [Unknown]
  - Insomnia [Unknown]
  - Pain [Unknown]
